FAERS Safety Report 9503339 (Version 1)
Quarter: 2013Q1

REPORT INFORMATION
  Report Type: Spontaneous
  Country: US (occurrence: None)
  Receive Date: 20130107
  Receipt Date: 20130107
  Transmission Date: 20140127
  Serious: No
  Sender: FDA-Public Use
  Company Number: PHEH2012US017536

PATIENT
  Age: 55 Year
  Sex: Female

DRUGS (1)
  1. GILENYA [Suspect]
     Indication: MULTIPLE SCLEROSIS
     Route: 048
     Dates: start: 201108

REACTIONS (6)
  - Eye disorder [None]
  - Multiple sclerosis relapse [None]
  - Drug ineffective [None]
  - Pain in extremity [None]
  - Muscle spasticity [None]
  - Muscular weakness [None]
